FAERS Safety Report 6876584-0 (Version None)
Quarter: 2010Q3

REPORT INFORMATION
  Report Type: 
  Country: None (occurrence: None)
  Receive Date: 20100727
  Receipt Date: 20100720
  Transmission Date: 20110219
  Serious: Yes (Hospitalization)
  Sender: FDA-Public Use
  Company Number: US-ABBOTT-10P-163-0659040-00

PATIENT
  Sex: Female

DRUGS (2)
  1. HUMIRA [Suspect]
     Indication: PSORIATIC ARTHROPATHY
     Dates: start: 20091101
  2. HUMIRA [Suspect]
     Indication: PSORIASIS

REACTIONS (4)
  - DEVICE BREAKAGE [None]
  - GAIT DISTURBANCE [None]
  - HIP FRACTURE [None]
  - SENSATION OF FOREIGN BODY [None]
